FAERS Safety Report 8936262 (Version 3)
Quarter: 2014Q3

REPORT INFORMATION
  Report Type: Spontaneous
  Country: DE (occurrence: DE)
  Receive Date: 20121130
  Receipt Date: 20140728
  Transmission Date: 20150326
  Serious: Yes (Death)
  Sender: FDA-Public Use
  Company Number: DE-NAPPMUNDI-DEU-2012-0009883

PATIENT
  Sex: Male

DRUGS (5)
  1. MSI MUNDIPHARMA [Suspect]
     Active Substance: MORPHINE SULFATE
     Indication: SEDATIVE THERAPY
  2. DORMICUM /00036201/ [Suspect]
     Active Substance: NITRAZEPAM
     Indication: PRODUCT USED FOR UNKNOWN INDICATION
     Route: 065
  3. MSI MUNDIPHARMA [Suspect]
     Active Substance: MORPHINE SULFATE
     Indication: DYSPNOEA
     Dosage: 10 MG, SINGLE
     Route: 042
     Dates: start: 20091115, end: 20091115
  4. MSI MUNDIPHARMA [Suspect]
     Active Substance: MORPHINE SULFATE
     Indication: RESPIRATORY GAS EXCHANGE DISORDER
  5. MIDAZOLAM [Suspect]
     Active Substance: MIDAZOLAM\MIDAZOLAM HYDROCHLORIDE
     Indication: PRODUCT USED FOR UNKNOWN INDICATION

REACTIONS (4)
  - Off label use [Fatal]
  - Respiratory depression [None]
  - Death [Fatal]
  - Medication error [Fatal]

NARRATIVE: CASE EVENT DATE: 20091115
